FAERS Safety Report 9376356 (Version 1)
Quarter: 2013Q3

REPORT INFORMATION
  Report Type: Spontaneous
  Country: ZA (occurrence: ZA)
  Receive Date: 20130701
  Receipt Date: 20130701
  Transmission Date: 20140515
  Serious: Yes (Hospitalization)
  Sender: FDA-Public Use
  Company Number: ZA-JNJFOC-20130612396

PATIENT
  Sex: Female

DRUGS (1)
  1. DUROGESIC [Suspect]
     Indication: ACCIDENTAL EXPOSURE TO PRODUCT
     Route: 062

REACTIONS (3)
  - Respiratory disorder [Recovered/Resolved]
  - Accidental exposure to product [Unknown]
  - Wrong technique in drug usage process [Unknown]
